FAERS Safety Report 8112386-5 (Version None)
Quarter: 2012Q1

REPORT INFORMATION
  Report Type: 
  Country: None (occurrence: None)
  Receive Date: 20120203
  Receipt Date: 20120120
  Transmission Date: 20120608
  Serious: Yes (Other)
  Sender: FDA-Public Use
  Company Number: DE-AMGEN-DEUSP2011060262

PATIENT
  Age: 74 Year
  Sex: Male

DRUGS (9)
  1. RAMIPRIL + HIDROCLOROTIAZIDA [Concomitant]
     Indication: HYPERTENSION
     Dosage: 5MG/25MG IN THE MORNING AND AT MIDDAY 1/2 TABLET
  2. ENBREL [Suspect]
     Indication: PSORIATIC ARTHROPATHY
     Dosage: 25 MG, WEEKLY
     Dates: start: 20080305
  3. PSORCUTAN [Concomitant]
     Indication: PSORIATIC ARTHROPATHY
     Dosage: UNK
  4. ENBREL [Suspect]
     Dosage: 50 MG, WEEKLY
     Dates: end: 20110304
  5. AMLODIPINE BESYLATE AND VALSARTAN [Concomitant]
     Indication: HYPERTENSION
     Dosage: 10MG/160MG IN THE MORNING ONE TABLET
  6. TAMSULOSIN HCL [Concomitant]
     Dosage: 0.4 MG, IN THE MORNING 1 1/2 TABLET
  7. ENBREL [Suspect]
     Dosage: 50 MG, WEEKLY
     Dates: start: 20111210
  8. ALLOPURINOL [Concomitant]
     Indication: AZOTAEMIA
     Dosage: 300 UNK, IN THE MORNING 1 TABLET
  9. VITAMIN E                          /00110501/ [Concomitant]
     Indication: ABDOMINAL WALL DISORDER
     Dosage: 275 MG, AT MIDDAY

REACTIONS (4)
  - KNEE ARTHROPLASTY [None]
  - TUBERCULOSIS [None]
  - PSORIATIC ARTHROPATHY [None]
  - MYCOBACTERIUM TUBERCULOSIS COMPLEX TEST POSITIVE [None]
